FAERS Safety Report 8473560-1 (Version None)
Quarter: 2012Q2

REPORT INFORMATION
  Report Type: 
  Country: None (occurrence: None)
  Receive Date: 20120628
  Receipt Date: 20110815
  Transmission Date: 20120825
  Serious: Yes (Other)
  Sender: FDA-Public Use
  Company Number: US-MYLANLABS-2011S1011132

PATIENT
  Age: 37 Year
  Sex: Male
  Weight: 72.58 kg

DRUGS (11)
  1. CLOZAPINE [Suspect]
     Indication: MOOD DISORDER DUE TO A GENERAL MEDICAL CONDITION
     Dates: end: 20110601
  2. CLOZAPINE [Suspect]
     Dates: start: 20110601
  3. CLOZAPINE [Suspect]
     Dates: end: 20110617
  4. CLOZAPINE [Suspect]
     Route: 048
     Dates: start: 20110411, end: 20110617
  5. CLONAZEPAM [Concomitant]
  6. CLOZAPINE [Suspect]
     Route: 048
     Dates: start: 20110411, end: 20110617
  7. MERCAPTOPURINE [Suspect]
     Dates: start: 20110401, end: 20110805
  8. DEPAKOTE [Concomitant]
     Dates: start: 20110401, end: 20110805
  9. PERPHENAZINE [Concomitant]
     Dates: start: 20110401, end: 20110520
  10. CLOZAPINE [Suspect]
     Dates: end: 20110617
  11. NAVANE [Concomitant]

REACTIONS (1)
  - GRANULOCYTOPENIA [None]
